FAERS Safety Report 6193751-2 (Version None)
Quarter: 2009Q2

REPORT INFORMATION
  Report Type: 
  Country: None (occurrence: None)
  Receive Date: 20090518
  Receipt Date: 20090319
  Transmission Date: 20091009
  Serious: Yes (Hospitalization)
  Sender: FDA-Public Use
  Company Number: KR-PFIZER INC-2007026713

PATIENT
  Age: 72 Year

DRUGS (4)
  1. SUNITINIB MALATE [Suspect]
     Indication: RENAL CELL CARCINOMA
     Dosage: 37.5 MG, 1X/DAY
     Route: 048
     Dates: start: 20070302, end: 20070327
  2. FAMOTIDINE [Concomitant]
     Route: 048
     Dates: start: 20070322, end: 20070330
  3. MOSAPRIDE [Concomitant]
     Route: 048
     Dates: start: 20070322, end: 20070330
  4. ULTRACET [Concomitant]
     Route: 048
     Dates: start: 20070316, end: 20070330

REACTIONS (9)
  - ABDOMINAL PAIN UPPER [None]
  - ANAEMIA OF CHRONIC DISEASE [None]
  - BLOOD PRODUCT TRANSFUSION DEPENDENT [None]
  - GALLBLADDER DISORDER [None]
  - GASTRIC HAEMORRHAGE [None]
  - GASTRITIS [None]
  - NAUSEA [None]
  - THROMBOCYTOPENIA [None]
  - VOMITING [None]
